FAERS Safety Report 13490815 (Version 1)
Quarter: 2017Q2

REPORT INFORMATION
  Report Type: Spontaneous
  Country: US (occurrence: US)
  Receive Date: 20170427
  Receipt Date: 20170427
  Transmission Date: 20170830
  Serious: No
  Sender: FDA-Public Use
  Company Number: US-MYLANLABS-2016M1048192

PATIENT
  Sex: Female

DRUGS (1)
  1. LUXIQ [Suspect]
     Active Substance: BETAMETHASONE VALERATE
     Indication: ACNE
     Dosage: UNK
     Dates: start: 2016, end: 2016

REACTIONS (3)
  - Rash [Not Recovered/Not Resolved]
  - Pain [Not Recovered/Not Resolved]
  - Acne [Not Recovered/Not Resolved]

NARRATIVE: CASE EVENT DATE: 2016
